FAERS Safety Report 5157917-2 (Version None)
Quarter: 2006Q4

REPORT INFORMATION
  Report Type: 
  Country: None (occurrence: None)
  Receive Date: 20061122
  Receipt Date: 20061122
  Transmission Date: 20070319
  Serious: Yes (Other)
  Sender: FDA-Public Use
  Company Number: None

PATIENT
  Age: 84 Year
  Sex: Female
  Weight: 64.4108 kg

DRUGS (1)
  1. MOBIC [Suspect]
     Indication: OSTEOARTHRITIS
     Dosage: PO QD
     Route: 048
     Dates: start: 20060801, end: 20061101

REACTIONS (2)
  - ARTHRALGIA [None]
  - DRUG INEFFECTIVE [None]
